FAERS Safety Report 19975817 (Version 1)
Quarter: 2021Q4

REPORT INFORMATION
  Report Type: Spontaneous
  Country: US (occurrence: US)
  Receive Date: 20211020
  Receipt Date: 20211020
  Transmission Date: 20220304
  Serious: No
  Sender: FDA-Public Use
  Company Number: US-NESTLEHEALTHSCIENCE-202000135

PATIENT
  Age: 65 Year
  Sex: Female

DRUGS (8)
  1. ZENPEP [Suspect]
     Active Substance: PANCRELIPASE AMYLASE\PANCRELIPASE LIPASE\PANCRELIPASE PROTEASE
     Dosage: IN TOTAL 80,000 USP; 4 OF THE 20,000 WITH BIG MEALS WHICH MAKES 80,000 IN TOTAL
  2. AMLODIPINE [Concomitant]
     Active Substance: AMLODIPINE BESYLATE
     Dosage: 3 MG ONCE A DAY
  3. METFORMIN [Concomitant]
     Active Substance: METFORMIN HYDROCHLORIDE
     Dosage: 500 MG TWICE A DAY
  4. Benicar 40 mg tablet, film coated [Concomitant]
     Dosage: 40 MG ONCE A DAY
  5. Synthroid 112 ug/1 tablet [Concomitant]
  6. CRESTOR 10 mg TABLET, FILM COATED [Concomitant]
     Dosage: 10 MG ONCE A DAY
  7. Aspirin 81 mg TABLET [Concomitant]
     Dosage: 81 MG ONCE A DAY
  8. Xanax .5 mg TABLET [Concomitant]
     Dosage: 0.5 MG ONCE A DAY

REACTIONS (2)
  - Dysphagia [Unknown]
  - Throat irritation [Not Recovered/Not Resolved]
